FAERS Safety Report 5187960-9 (Version None)
Quarter: 2006Q4

REPORT INFORMATION
  Report Type: 
  Country: None (occurrence: None)
  Receive Date: 20061220
  Receipt Date: 20061220
  Transmission Date: 20070319
  Serious: Yes (Life-Threatening, Disabling)
  Sender: FDA-Public Use
  Company Number: None

PATIENT
  Age: 62 Year
  Sex: Female

DRUGS (2)
  1. DURAGESIC-100 [Suspect]
     Indication: FIBROMYALGIA
     Dosage: 75MCG  Q3 DAYS  TOP
     Route: 061
     Dates: start: 20061216, end: 20061216
  2. DURAGESIC-100 [Suspect]
     Indication: PAIN
     Dosage: 75MCG  Q3 DAYS  TOP
     Route: 061
     Dates: start: 20061216, end: 20061216

REACTIONS (4)
  - CONVULSION [None]
  - MALAISE [None]
  - PHARMACEUTICAL PRODUCT COMPLAINT [None]
  - TREMOR [None]
